FAERS Safety Report 14933323 (Version 2)
Quarter: 2018Q2

REPORT INFORMATION
  Report Type: Spontaneous
  Country: RU (occurrence: RU)
  Receive Date: 20180524
  Receipt Date: 20180531
  Transmission Date: 20180711
  Serious: Yes (Other)
  Sender: FDA-Public Use
  Company Number: RU-ROCHE-2127309

PATIENT
  Age: 46 Year
  Sex: Female
  Weight: 90 kg

DRUGS (9)
  1. TRASTUZUMAB. [Suspect]
     Active Substance: TRASTUZUMAB
     Dosage: 6 CYCLES
     Route: 042
     Dates: start: 20170428, end: 20180409
  2. CARBOPLATIN. [Suspect]
     Active Substance: CARBOPLATIN
     Indication: BREAST CANCER
     Route: 041
     Dates: start: 20170428, end: 20170811
  3. TRASTUZUMAB. [Suspect]
     Active Substance: TRASTUZUMAB
     Indication: BREAST CANCER
     Dosage: 6 CYCLES AS LOADED DOSE
     Route: 042
     Dates: start: 201704, end: 201704
  4. DOCETAXEL. [Suspect]
     Active Substance: DOCETAXEL
     Indication: BREAST CANCER
     Route: 041
     Dates: start: 20170428, end: 20170811
  5. SEROTONIN [Concomitant]
     Active Substance: SEROTONIN
     Indication: BREAST CANCER
     Route: 041
     Dates: start: 20170428, end: 20170811
  6. PERTUZUMAB. [Suspect]
     Active Substance: PERTUZUMAB
     Indication: BREAST CANCER
     Dosage: 6 CYCLES AS LOADED DOSE
     Route: 042
     Dates: start: 201704, end: 201704
  7. HEPTOR [Concomitant]
     Indication: BREAST CANCER
     Route: 041
     Dates: start: 20170428, end: 20170922
  8. PERTUZUMAB. [Suspect]
     Active Substance: PERTUZUMAB
     Dosage: 6 CYCLES
     Route: 042
     Dates: start: 20170428, end: 20170811
  9. QUAMATEL [Concomitant]
     Active Substance: FAMOTIDINE
     Indication: BREAST CANCER
     Route: 041
     Dates: start: 20170428, end: 20170811

REACTIONS (6)
  - Hepatitis toxic [Unknown]
  - Asthenia [Recovered/Resolved]
  - Peripheral sensory neuropathy [Recovered/Resolved]
  - Anaemia [Unknown]
  - Neutropenia [Recovered/Resolved]
  - Alopecia [Recovered/Resolved]

NARRATIVE: CASE EVENT DATE: 201705
